FAERS Safety Report 6063498-1 (Version None)
Quarter: 2009Q1

REPORT INFORMATION
  Report Type: 
  Country: None (occurrence: None)
  Receive Date: 20090203
  Receipt Date: 20090128
  Transmission Date: 20090719
  Serious: No
  Sender: FDA-Public Use
  Company Number: US-B.I. PHARMACEUTICALS,INC./RIDGEFIELD-2009-BP-01046BP

PATIENT
  Sex: Male

DRUGS (3)
  1. SPIRIVA [Suspect]
     Indication: CHRONIC OBSTRUCTIVE PULMONARY DISEASE
     Dosage: 18MCG
     Route: 055
     Dates: start: 20080901
  2. WELLBUTRIN [Concomitant]
     Indication: SMOKING CESSATION THERAPY
     Dates: start: 20081101
  3. XANAX [Concomitant]
     Indication: SMOKING CESSATION THERAPY
     Dates: start: 20081101

REACTIONS (1)
  - DYSPNOEA [None]
